FAERS Safety Report 18216065 (Version 1)
Quarter: 2020Q3

REPORT INFORMATION
  Report Type: Spontaneous
  Country: US (occurrence: US)
  Receive Date: 20200901
  Receipt Date: 20200901
  Transmission Date: 20201103
  Serious: No
  Sender: FDA-Public Use
  Company Number: US-BRISTOL-MYERS SQUIBB COMPANY-BMS-2020-070655

PATIENT
  Sex: Female

DRUGS (1)
  1. ELIQUIS [Suspect]
     Active Substance: APIXABAN
     Indication: CEREBROVASCULAR ACCIDENT PROPHYLAXIS
     Dosage: UNK
     Route: 065
     Dates: start: 20200818

REACTIONS (6)
  - Arthralgia [Unknown]
  - Dizziness [Unknown]
  - Disturbance in attention [Unknown]
  - Asthenia [Unknown]
  - Balance disorder [Unknown]
  - Memory impairment [Unknown]
